FAERS Safety Report 16846274 (Version 3)
Quarter: 2019Q4

REPORT INFORMATION
  Report Type: Spontaneous
  Country: US (occurrence: US)
  Receive Date: 20190924
  Receipt Date: 20191023
  Transmission Date: 20200122
  Serious: No
  Sender: FDA-Public Use
  Company Number: US-SA-2019SA261630

PATIENT
  Age: 60 Year
  Sex: Male

DRUGS (7)
  1. ALBUTEROL SULFATE. [Concomitant]
     Active Substance: ALBUTEROL SULFATE
  2. MONTELUKAST SODIUM. [Concomitant]
     Active Substance: MONTELUKAST SODIUM
  3. XOLAIR [Concomitant]
     Active Substance: OMALIZUMAB
  4. DUPIXENT [Suspect]
     Active Substance: DUPILUMAB
     Indication: CHRONIC RHINOSINUSITIS WITH NASAL POLYPS
     Dosage: 300 MG, 1X
     Route: 058
     Dates: start: 20190912, end: 20190912
  5. EPINEPHRINE. [Concomitant]
     Active Substance: EPINEPHRINE
  6. BUDESONIDE. [Concomitant]
     Active Substance: BUDESONIDE
  7. MUPIROCIN. [Concomitant]
     Active Substance: MUPIROCIN

REACTIONS (13)
  - Hyposmia [Recovered/Resolved]
  - Facial pain [Recovered/Resolved]
  - Rhinorrhoea [Unknown]
  - Ear discomfort [Recovered/Resolved]
  - Toothache [Unknown]
  - Sneezing [Unknown]
  - Headache [Not Recovered/Not Resolved]
  - Pain in jaw [Unknown]
  - Pain [Unknown]
  - Hypogeusia [Recovered/Resolved]
  - Rash [Not Recovered/Not Resolved]
  - Dyspnoea [Unknown]
  - Cough [Unknown]

NARRATIVE: CASE EVENT DATE: 2019
